FAERS Safety Report 9066975 (Version 1)
Quarter: 2013Q1

REPORT INFORMATION
  Report Type: Spontaneous
  Country: US (occurrence: US)
  Receive Date: 20130131
  Receipt Date: 20130131
  Transmission Date: 20140127
  Serious: No
  Sender: FDA-Public Use
  Company Number: US-ABBOTT-12P-163-1001309-00

PATIENT
  Sex: Male

DRUGS (4)
  1. HUMIRA [Suspect]
     Indication: PSORIATIC ARTHROPATHY
     Route: 058
     Dates: start: 200809, end: 201104
  2. HUMIRA [Suspect]
     Indication: PSORIASIS
  3. PREDNISONE [Suspect]
     Indication: PSORIATIC ARTHROPATHY
  4. PREDNISONE [Suspect]
     Indication: PSORIASIS

REACTIONS (4)
  - Granuloma skin [Recovered/Resolved]
  - Coccidioidomycosis [Unknown]
  - Skin infection [Recovered/Resolved]
  - Psoriasis [Unknown]
